FAERS Safety Report 23393601 (Version 3)
Quarter: 2024Q3

REPORT INFORMATION
  Report Type: Spontaneous
  Country: US (occurrence: US)
  Receive Date: 20240111
  Receipt Date: 20240902
  Transmission Date: 20241017
  Serious: Yes (Death)
  Sender: PFIZER
  Company Number: US-PFIZER INC-202201196244

PATIENT
  Age: 89 Year
  Sex: Male
  Weight: 74.84 kg

DRUGS (9)
  1. VYNDAMAX [Suspect]
     Active Substance: TAFAMIDIS
     Indication: Amyloidosis
     Dosage: 61 MG, 1X/DAY
     Dates: start: 202008
  2. VYNDAMAX [Suspect]
     Active Substance: TAFAMIDIS
     Indication: Acquired ATTR amyloidosis
  3. AMIODARONE [Concomitant]
     Active Substance: AMIODARONE
     Dosage: 400 MG
     Dates: start: 202010
  4. JARDIANCE [Concomitant]
     Active Substance: EMPAGLIFLOZIN
     Dosage: 25 MG
     Dates: start: 20201020
  5. TORSEMIDE [Concomitant]
     Active Substance: TORSEMIDE
     Dosage: 60 MG
     Dates: start: 20201020
  6. EPLERENONE [Concomitant]
     Active Substance: EPLERENONE
     Dosage: 50 MG
     Dates: start: 20210120
  7. MEMANTINE [Concomitant]
     Active Substance: MEMANTINE
     Dosage: 10 MG
     Dates: start: 20210220
  8. ALLOPURINOL [Concomitant]
     Active Substance: ALLOPURINOL
     Dosage: 300 MG
     Dates: start: 20170606
  9. POTASSIUM [Concomitant]
     Active Substance: POTASSIUM
     Dosage: 30 MG
     Dates: start: 20201020

REACTIONS (1)
  - Cardiac amyloidosis [Fatal]

NARRATIVE: CASE EVENT DATE: 20201001
